FAERS Safety Report 8925258 (Version 2)
Quarter: 2013Q1

REPORT INFORMATION
  Report Type: Spontaneous
  Country: US (occurrence: US)
  Receive Date: 20121126
  Receipt Date: 20130220
  Transmission Date: 20140127
  Serious: Yes (Other)
  Sender: FDA-Public Use
  Company Number: US-NOVOPROD-364424

PATIENT
  Age: 43 Year
  Sex: Female
  Weight: 88.4 kg

DRUGS (8)
  1. NORDITROPIN FLEXPRO [Suspect]
     Indication: GROWTH HORMONE DEFICIENCY
     Dosage: 0.25 MG, QD
     Route: 058
  2. NORDITROPIN FLEXPRO [Suspect]
     Dosage: 0.2 MG QD
     Route: 058
     Dates: start: 201008
  3. ASPIRIN [Concomitant]
     Indication: PRODUCT USED FOR UNKNOWN INDICATION
     Dosage: 325 MG, QD
     Route: 048
  4. BISACODYL [Concomitant]
     Indication: CONSTIPATION
     Dosage: 5 MG, QD, 1 TAB BY MOUTH ONCE DAILY AS NEEDED
     Route: 048
  5. CYCLOBENZAPRINE [Concomitant]
     Indication: PRODUCT USED FOR UNKNOWN INDICATION
     Dosage: 2.5 MG, BID
     Route: 048
  6. ERGOCALCIFEROL [Concomitant]
     Indication: VITAMIN D DEFICIENCY
     Dosage: 100000 U, Q 7 DAYS
     Route: 048
  7. NEXIUM                             /01479302/ [Concomitant]
     Indication: PRODUCT USED FOR UNKNOWN INDICATION
     Route: 048
  8. METOPROLOL TARTRATE [Concomitant]
     Indication: PRODUCT USED FOR UNKNOWN INDICATION
     Dosage: 25 MG, BID
     Route: 048

REACTIONS (2)
  - Iliac artery embolism [Recovered/Resolved]
  - Femoral artery embolism [Recovered/Resolved]
